FAERS Safety Report 9502848 (Version 1)
Quarter: 2013Q3

REPORT INFORMATION
  Report Type: Spontaneous
  Country: FR (occurrence: FR)
  Receive Date: 20130906
  Receipt Date: 20130906
  Transmission Date: 20140515
  Serious: Yes (Hospitalization)
  Sender: FDA-Public Use
  Company Number: FR-ELI_LILLY_AND_COMPANY-FR201308008037

PATIENT
  Age: 71 Year
  Sex: Male

DRUGS (2)
  1. CYMBALTA [Suspect]
     Dosage: UNK, UNKNOWN
     Route: 048
     Dates: start: 201302, end: 201305
  2. LYRICA [Suspect]
     Dosage: UNK, UNKNOWN
     Route: 048
     Dates: start: 201302, end: 201305

REACTIONS (2)
  - Somatic delusion [Not Recovered/Not Resolved]
  - Epididymitis [Unknown]
